FAERS Safety Report 8046078-8 (Version None)
Quarter: 2012Q1

REPORT INFORMATION
  Report Type: 
  Country: None (occurrence: None)
  Receive Date: 20120113
  Receipt Date: 20120110
  Transmission Date: 20120608
  Serious: Yes (Other)
  Sender: FDA-Public Use
  Company Number: ES-AMGEN-ESPSP2012001872

PATIENT
  Age: 52 Year
  Sex: Female

DRUGS (3)
  1. NEUPOGEN [Suspect]
     Indication: NEUTROPENIA
     Dosage: 0.5 UNK, UNK
     Route: 058
     Dates: start: 20111116, end: 20111117
  2. DOXORUBICIN HCL [Concomitant]
     Indication: BREAST CANCER
     Dosage: UNK
     Route: 042
     Dates: start: 20111115
  3. CYCLOPHOSPHAMIDE [Concomitant]
     Indication: BREAST CANCER
     Dosage: UNK
     Route: 042
     Dates: start: 20111115

REACTIONS (4)
  - SYNCOPE [None]
  - HOT FLUSH [None]
  - FLUSHING [None]
  - DIZZINESS [None]
